FAERS Safety Report 8543243-8 (Version None)
Quarter: 2012Q3

REPORT INFORMATION
  Report Type: 
  Country: None (occurrence: None)
  Receive Date: 20120727
  Receipt Date: 20120719
  Transmission Date: 20120928
  Serious: No
  Sender: FDA-Public Use
  Company Number: US-B.I. PHARMACEUTICALS,INC./RIDGEFIELD-2012-BP-16144BP

PATIENT
  Sex: Male

DRUGS (7)
  1. MEDICATION NOT FURTHER SPECIFIED [Concomitant]
     Route: 048
  2. SPIRIVA [Suspect]
     Indication: CHRONIC OBSTRUCTIVE PULMONARY DISEASE
     Dosage: 18 MCG
     Route: 055
     Dates: start: 20100101
  3. MEDICATION NOT FURTHER SPECIFIED [Concomitant]
     Indication: ABDOMINAL DISCOMFORT
     Route: 048
  4. OXYGEN [Concomitant]
     Indication: DYSPNOEA
     Route: 048
     Dates: start: 20050101
  5. SPIRIVA [Suspect]
     Route: 048
     Dates: start: 20120719, end: 20120719
  6. MEDICATION NOT FURTHER SPECIFIED [Concomitant]
     Indication: HYPERTENSION
     Route: 048
  7. VALIUM [Concomitant]
     Indication: ANXIETY
     Route: 048

REACTIONS (3)
  - INCORRECT ROUTE OF DRUG ADMINISTRATION [None]
  - BLOOD CHOLESTEROL INCREASED [None]
  - FEELING JITTERY [None]
